FAERS Safety Report 6099421-3 (Version None)
Quarter: 2009Q1

REPORT INFORMATION
  Report Type: 
  Country: None (occurrence: None)
  Receive Date: 20090225
  Receipt Date: 20090225
  Transmission Date: 20090719
  Serious: Yes (Other)
  Sender: FDA-Public Use
  Company Number: None

PATIENT
  Age: 67 Year
  Sex: Female
  Weight: 72.5755 kg

DRUGS (1)
  1. LEVAQUIN [Suspect]
     Indication: DIVERTICULITIS
     Dosage: 500 MG 1 TIMES A DAY
     Dates: start: 20090112, end: 20090117

REACTIONS (3)
  - INJURY [None]
  - INSOMNIA [None]
  - MUSCULOSKELETAL PAIN [None]
